FAERS Safety Report 6059446-0 (Version None)
Quarter: 2009Q1

REPORT INFORMATION
  Report Type: 
  Country: None (occurrence: None)
  Receive Date: 20090130
  Receipt Date: 20090120
  Transmission Date: 20090719
  Serious: Yes (Other)
  Sender: FDA-Public Use
  Company Number: PHHY2009ES02056

PATIENT
  Age: 14 Year
  Sex: Female

DRUGS (3)
  1. SANDIMMUNE [Suspect]
     Indication: APLASIA
     Dosage: BETWEEN 130 AND 140 MG
  2. SANDIMMUNE [Suspect]
     Dosage: 30 MG/12H
  3. ZYLORIC [Concomitant]

REACTIONS (2)
  - ACNE [None]
  - CYSTATIN C ABNORMAL [None]
